FAERS Safety Report 7153969-9 (Version None)
Quarter: 2010Q4

REPORT INFORMATION
  Report Type: 
  Country: None (occurrence: None)
  Receive Date: 20101124
  Receipt Date: 20101111
  Transmission Date: 20110411
  Serious: Yes (Other)
  Sender: FDA-Public Use
  Company Number: 011942

PATIENT
  Age: 1 Month
  Sex: Male

DRUGS (1)
  1. BUSULFEX [Suspect]
     Indication: STEM CELL TRANSPLANT
     Dosage: 2 MG/KG, DAILY DOSE, INTRAVENOUS
     Route: 042

REACTIONS (3)
  - DEVICE RELATED INFECTION [None]
  - EPSTEIN-BARR VIRUS INFECTION [None]
  - VARICELLA [None]
